FAERS Safety Report 5239079-6 (Version None)
Quarter: 2007Q1

REPORT INFORMATION
  Report Type: 
  Country: None (occurrence: None)
  Receive Date: 20061208
  Receipt Date: 20050706
  Transmission Date: 20070707
  Serious: Yes (Other)
  Sender: FDA-Public Use
  Company Number: 2005UW10101

PATIENT
  Sex: Female

DRUGS (4)
  1. CRESTOR [Suspect]
     Dosage: 40 MG QD PO
     Route: 048
  2. CARDIOVASCULAR MEDICATIONS [Concomitant]
  3. DIABETIC DRUGS [Concomitant]
  4. SEIZURE MEDICATIONS [Concomitant]

REACTIONS (1)
  - BLOOD CREATININE INCREASED [None]
